FAERS Safety Report 15670466 (Version 1)
Quarter: 2018Q4

REPORT INFORMATION
  Report Type: Spontaneous
  Country: US (occurrence: US)
  Receive Date: 20181119
  Receipt Date: 20181119
  Transmission Date: 20190205
  Serious: No
  Sender: FDA-Public Use
  Company Number: None

PATIENT
  Age: 62 Year
  Sex: Male

DRUGS (1)
  1. MYCOPHENOLATE MOFETIL  500MG TABLET [Suspect]
     Active Substance: MYCOPHENOLATE MOFETIL
     Route: 048
     Dates: start: 20180726

REACTIONS (5)
  - Manufacturing product shipping issue [None]
  - Insurance issue [None]
  - Condition aggravated [None]
  - Skin fissures [None]
  - Dry skin [None]

NARRATIVE: CASE EVENT DATE: 20181116
